FAERS Safety Report 24939825 (Version 1)
Quarter: 2025Q1

REPORT INFORMATION
  Report Type: Spontaneous
  Country: US (occurrence: US)
  Receive Date: 20250207
  Receipt Date: 20250207
  Transmission Date: 20250409
  Serious: Yes (Death, Life-Threatening, Hospitalization, Other)
  Sender: BOEHRINGER INGELHEIM
  Company Number: US-Komodo Health-a23aa000005fXA2AAM

PATIENT
  Age: 75 Year
  Sex: Male

DRUGS (1)
  1. SPIRIVA RESPIMAT [Suspect]
     Active Substance: TIOTROPIUM BROMIDE
     Indication: Product used for unknown indication

REACTIONS (5)
  - Lung neoplasm malignant [Fatal]
  - Lung carcinoma cell type unspecified recurrent [Fatal]
  - Cerebrovascular accident [Fatal]
  - Metastases to central nervous system [Fatal]
  - Coronary arterial stent insertion [Fatal]

NARRATIVE: CASE EVENT DATE: 20200101
